FAERS Safety Report 6781233-6 (Version None)
Quarter: 2010Q2

REPORT INFORMATION
  Report Type: 
  Country: None (occurrence: None)
  Receive Date: 20100616
  Receipt Date: 20100604
  Transmission Date: 20101027
  Serious: Yes (Disabling)
  Sender: FDA-Public Use
  Company Number: TUK2010A00191

PATIENT
  Age: 66 Year
  Sex: Female

DRUGS (5)
  1. ACTOS [Suspect]
     Dosage: (30 MG), ORAL
     Route: 048
  2. DIAZEPAM [Concomitant]
  3. ESOMEPRAZOLE MAGNESIUM [Concomitant]
  4. GLUCOPHAGE SR (METFORMIN HYDROCHLORIDE) [Concomitant]
  5. PROPRANOLOL [Concomitant]

REACTIONS (2)
  - CONDITION AGGRAVATED [None]
  - RHEUMATOID ARTHRITIS [None]
